FAERS Safety Report 4823878-6 (Version None)
Quarter: 2005Q4

REPORT INFORMATION
  Report Type: 
  Country: None (occurrence: None)
  Receive Date: 20051107
  Receipt Date: 20051025
  Transmission Date: 20060501
  Serious: Yes (Other)
  Sender: FDA-Public Use
  Company Number: 2005084703

PATIENT
  Age: 20 Year
  Sex: Male
  Weight: 140 kg

DRUGS (1)
  1. BENADRYL [Suspect]
     Indication: EYE IRRITATION
     Dosage: 2 TABLETS ONCE, ORAL
     Route: 048
     Dates: start: 20050603, end: 20050603

REACTIONS (7)
  - DRUG HYPERSENSITIVITY [None]
  - ERYTHEMA [None]
  - FEELING HOT [None]
  - PRURITUS [None]
  - SWELLING [None]
  - URTICARIA [None]
  - VOMITING [None]
